FAERS Safety Report 5398781-6 (Version None)
Quarter: 2007Q3

REPORT INFORMATION
  Report Type: 
  Country: None (occurrence: None)
  Receive Date: 20070724
  Receipt Date: 20070712
  Transmission Date: 20080115
  Serious: Yes (Other)
  Sender: FDA-Public Use
  Company Number: SPV1-2007-03611

PATIENT
  Age: 79 Year
  Sex: Male

DRUGS (1)
  1. PENTASA [Suspect]
     Indication: COLITIS ULCERATIVE
     Dosage: 250 MG, 3X/DAY:TID, ORAL
     Route: 048

REACTIONS (3)
  - CARDIAC FAILURE [None]
  - CARDIAC VALVE DISEASE [None]
  - MYOCARDITIS [None]
